FAERS Safety Report 6910146-1 (Version None)
Quarter: 2010Q3

REPORT INFORMATION
  Report Type: 
  Country: None (occurrence: None)
  Receive Date: 20100806
  Receipt Date: 20100727
  Transmission Date: 20110219
  Serious: Yes (Hospitalization, Other)
  Sender: FDA-Public Use
  Company Number: US-ELI_LILLY_AND_COMPANY-US201002003768

PATIENT
  Sex: Male
  Weight: 149.66 kg

DRUGS (4)
  1. BYETTA [Suspect]
     Dosage: UNK, UNKNOWN
     Route: 065
  2. BYETTA [Suspect]
     Dosage: UNK, UNKNOWN
     Dates: start: 20070101, end: 20080101
  3. METFORMIN HCL [Concomitant]
  4. DEPAKOTE [Concomitant]

REACTIONS (1)
  - PANCREATITIS [None]
